FAERS Safety Report 6614519-6 (Version None)
Quarter: 2010Q1

REPORT INFORMATION
  Report Type: 
  Country: None (occurrence: None)
  Receive Date: 20100304
  Receipt Date: 20100304
  Transmission Date: 20100710
  Serious: No
  Sender: FDA-Public Use
  Company Number: None

PATIENT
  Age: 69 Year
  Sex: Female

DRUGS (1)
  1. PREDNISONE [Suspect]
     Indication: SINUSITIS
     Dosage: 5MG 4 DAILY FOR 1 WK; 2 DAILY FOR 1 WK; 1 DAILY FOR REMAINDER; ORALLY
     Route: 048
     Dates: start: 20091217, end: 20100105

REACTIONS (4)
  - INFLUENZA LIKE ILLNESS [None]
  - PALPITATIONS [None]
  - SINUSITIS [None]
  - TINNITUS [None]
